FAERS Safety Report 9135336 (Version 2)
Quarter: 2013Q1

REPORT INFORMATION
  Report Type: Spontaneous
  Country: KR (occurrence: None)
  Receive Date: 20130131
  Receipt Date: 20130207
  Transmission Date: 20140127
  Serious: Yes (Death, Other)
  Sender: FDA-Public Use
  Company Number: KR-JNJFOC-20130112842

PATIENT
  Sex: 0

DRUGS (1)
  1. DECITABINE [Suspect]
     Indication: MYELODYSPLASTIC SYNDROME
     Dosage: 20  MG/M2,  1 IN 4 WEEK,  INTRAVENOUS???/??/????  -  ??/??/????
     Route: 042

REACTIONS (3)
  - Neutropenia [None]
  - Acute myeloid leukaemia [None]
  - Pyrexia [None]
